FAERS Safety Report 5950109-6 (Version None)
Quarter: 2008Q4

REPORT INFORMATION
  Report Type: 
  Country: None (occurrence: None)
  Receive Date: 20081112
  Receipt Date: 20081103
  Transmission Date: 20090506
  Serious: No
  Sender: FDA-Public Use
  Company Number: IE-PFIZER INC-2008088507

PATIENT
  Age: 39 Year
  Sex: Female

DRUGS (6)
  1. CHAMPIX [Suspect]
     Indication: SMOKING CESSATION THERAPY
     Route: 048
  2. LIDODERM [Concomitant]
  3. LYRICA [Concomitant]
  4. OXYNORM [Concomitant]
  5. GERAX [Concomitant]
  6. LEVOTHYROXINE SODIUM [Concomitant]

REACTIONS (1)
  - NO ADVERSE EVENT [None]
